FAERS Safety Report 11971910 (Version 6)
Quarter: 2023Q2

REPORT INFORMATION
  Report Type: Report from Study
  Country: BR (occurrence: BR)
  Receive Date: 20160128
  Receipt Date: 20230621
  Transmission Date: 20230721
  Serious: Yes (Death, Other)
  Sender: FDA-Public Use
  Company Number: BR-SHIRE-BR201600888

PATIENT
  Age: 7 Year
  Sex: Male

DRUGS (7)
  1. IDURSULFASE [Suspect]
     Active Substance: IDURSULFASE
     Indication: Mucopolysaccharidosis II
     Dosage: UNK
     Route: 041
  2. AMOXICILLIN [Concomitant]
     Active Substance: AMOXICILLIN
     Indication: Infection prophylaxis
  3. METAMIZOLE [Concomitant]
     Active Substance: METAMIZOLE
     Indication: Pain
     Route: 065
  4. RISPERIDONE [Concomitant]
     Active Substance: RISPERIDONE
     Indication: Agitation
     Dosage: UNK
     Route: 048
  5. DEXCHLORPHENIRAMINE MALEATE [Concomitant]
     Active Substance: DEXCHLORPHENIRAMINE MALEATE
     Indication: Hypersensitivity
     Dosage: UNK
     Route: 048
  6. MINILAX [Concomitant]
     Indication: Constipation
     Dosage: UNK
     Route: 048
  7. RANITIDINE [Concomitant]
     Active Substance: RANITIDINE
     Indication: Gastrointestinal disorder
     Dosage: UNK
     Route: 065
     Dates: start: 201010

REACTIONS (1)
  - Death [Fatal]

NARRATIVE: CASE EVENT DATE: 20160101
